FAERS Safety Report 7196489-8 (Version None)
Quarter: 2010Q4

REPORT INFORMATION
  Report Type: 
  Country: None (occurrence: None)
  Receive Date: 20101223
  Receipt Date: 20101025
  Transmission Date: 20110411
  Serious: No
  Sender: FDA-Public Use
  Company Number: US-AMGEN-USASP2010001811

PATIENT

DRUGS (1)
  1. ENBREL [Suspect]
     Indication: ANKYLOSING SPONDYLITIS
     Dates: start: 20030601

REACTIONS (5)
  - ANKYLOSING SPONDYLITIS [None]
  - DRUG INEFFECTIVE [None]
  - INFLAMMATION [None]
  - MUSCLE SPASMS [None]
  - PLANTAR FASCIITIS [None]
